FAERS Safety Report 7195088-1 (Version None)
Quarter: 2010Q4

REPORT INFORMATION
  Report Type: 
  Country: None (occurrence: None)
  Receive Date: 20101223
  Receipt Date: 20100924
  Transmission Date: 20110411
  Serious: No
  Sender: FDA-Public Use
  Company Number: US-AMGEN-KDL441113

PATIENT

DRUGS (1)
  1. ENBREL [Suspect]
     Indication: RHEUMATOID ARTHRITIS
     Dosage: 25 MG, 2 TIMES/WK
     Route: 058
     Dates: start: 20011101

REACTIONS (9)
  - ARTHROPOD BITE [None]
  - FEELING JITTERY [None]
  - HOT FLUSH [None]
  - LOCAL SWELLING [None]
  - ORAL HERPES [None]
  - PRURITUS [None]
  - SEASONAL ALLERGY [None]
  - SINUSITIS [None]
  - URTICARIA [None]
